FAERS Safety Report 4684418-8 (Version None)
Quarter: 2005Q2

REPORT INFORMATION
  Report Type: 
  Country: None (occurrence: None)
  Receive Date: 20050531
  Receipt Date: 20040406
  Transmission Date: 20051028
  Serious: Yes (Hospitalization)
  Sender: FDA-Public Use
  Company Number: 200411644US

PATIENT
  Age: 55 Year
  Sex: Male

DRUGS (29)
  1. LOVENOX [Suspect]
     Indication: ISCHAEMIC STROKE
     Dosage: 40 MG QD; 130 MG QD
     Dates: start: 20040222, end: 20040227
  2. LOVENOX [Suspect]
     Indication: ISCHAEMIC STROKE
     Dosage: 40 MG QD; 130 MG QD
     Dates: start: 20040228, end: 20040229
  3. . [Concomitant]
  4. WARFARIN SODIUM [Concomitant]
  5. ALBUTEROL [Concomitant]
  6. MEPERIDINE [Concomitant]
  7. REGULAR INSULIN [Concomitant]
  8. PAXIL [Concomitant]
  9. SPIRONOLACTONE [Concomitant]
  10. FUROSEMIDE [Concomitant]
  11. FAMOTIDINE [Concomitant]
  12. TRAMADOL HCL [Concomitant]
  13. SOTALOL HCL [Concomitant]
  14. DIGOXIN [Concomitant]
  15. TERAZOSIN [Concomitant]
  16. LACTULOSE [Concomitant]
  17. CAPTOPRIL [Concomitant]
  18. ZOLPIDEM [Concomitant]
  19. ACETAMINOPHEN [Concomitant]
  20. FUROSEMIDE [Concomitant]
  21. PIPERACILLIN SODIUM, TAZOBACTAM SODIUM (ZOSYN) [Concomitant]
  22. FENTANYL [Concomitant]
  23. BUMEX [Concomitant]
  24. VANCOMYCIN [Concomitant]
  25. KETOROLAC TROMETHAMINE (TORADOL) [Concomitant]
  26. DOPAMINE HCL [Concomitant]
  27. REGLAN [Concomitant]
  28. DIPRIVAN [Concomitant]
  29. REOPRO [Concomitant]

REACTIONS (4)
  - CATHETER SITE HAEMORRHAGE [None]
  - HAEMATOCRIT DECREASED [None]
  - HAEMOGLOBIN DECREASED [None]
  - TRACHEAL HAEMORRHAGE [None]
